FAERS Safety Report 8856139 (Version 1)
Quarter: 2012Q4

REPORT INFORMATION
  Report Type: Spontaneous
  Country: US (occurrence: None)
  Receive Date: 20121023
  Receipt Date: 20121023
  Transmission Date: 20130627
  Serious: Yes (Other)
  Sender: FDA-Public Use
  Company Number: None

PATIENT
  Sex: Female
  Weight: 83.92 kg

DRUGS (1)
  1. NIASAPAN [Suspect]
     Indication: CHOLESTEROL
     Dosage: 500mg 1x day at night
     Dates: start: 20120918, end: 20120928

REACTIONS (5)
  - Tremor [None]
  - Feeling hot [None]
  - Fall [None]
  - No therapeutic response [None]
  - Unevaluable event [None]
